FAERS Safety Report 23141179 (Version 1)
Quarter: 2023Q4

REPORT INFORMATION
  Report Type: Spontaneous
  Country: SE (occurrence: SE)
  Receive Date: 20231103
  Receipt Date: 20231103
  Transmission Date: 20240109
  Serious: Yes (Other)
  Sender: FDA-Public Use
  Company Number: SE-ELI_LILLY_AND_COMPANY-SE202310010351

PATIENT
  Sex: Female

DRUGS (1)
  1. OLANZAPINE [Suspect]
     Active Substance: OLANZAPINE
     Indication: Product used for unknown indication
     Dosage: DAILY DOSE: 30 MILLIGRAM
     Dates: start: 2021

REACTIONS (8)
  - Epilepsy [Recovered/Resolved]
  - Weight increased [Unknown]
  - Lack of satiety [Unknown]
  - Tooth injury [Unknown]
  - Gingival recession [Unknown]
  - Hyperaesthesia teeth [Unknown]
  - Breast disorder [Unknown]
  - Dry mouth [Unknown]
